FAERS Safety Report 9817319 (Version 1)
Quarter: 2014Q1

REPORT INFORMATION
  Report Type: Spontaneous
  Country: CN (occurrence: CN)
  Receive Date: 20140115
  Receipt Date: 20140115
  Transmission Date: 20141002
  Serious: Yes (Life-Threatening, Hospitalization)
  Sender: FDA-Public Use
  Company Number: CN-ROCHE-1333347

PATIENT
  Sex: Male

DRUGS (1)
  1. CEFTRIAXONE SODIUM [Suspect]
     Indication: LUNG INFECTION
     Route: 041
     Dates: start: 201106

REACTIONS (2)
  - Coma [Not Recovered/Not Resolved]
  - Anaphylactic shock [Not Recovered/Not Resolved]
